FAERS Safety Report 6271589-5 (Version None)
Quarter: 2009Q3

REPORT INFORMATION
  Report Type: 
  Country: None (occurrence: None)
  Receive Date: 20090716
  Receipt Date: 20090716
  Transmission Date: 20100115
  Serious: No
  Sender: FDA-Public Use
  Company Number: None

PATIENT

DRUGS (1)
  1. KLONOPIN [Suspect]
     Dates: start: 19970101

REACTIONS (2)
  - ANXIETY [None]
  - DRUG INEFFECTIVE [None]
